FAERS Safety Report 9303642 (Version 2)
Quarter: 2015Q2

REPORT INFORMATION
  Report Type: Spontaneous
  Country: US (occurrence: US)
  Receive Date: 20130522
  Receipt Date: 20150512
  Transmission Date: 20150821
  Serious: Yes (Hospitalization, Other)
  Sender: FDA-Public Use
  Company Number: US-BAYER-2013-062108

PATIENT
  Age: 26 Year
  Sex: Female

DRUGS (3)
  1. IMITREX [Concomitant]
     Active Substance: SUMATRIPTAN\SUMATRIPTAN SUCCINATE
     Indication: MIGRAINE
  2. GIANVI [Suspect]
     Active Substance: DROSPIRENONE\ETHINYL ESTRADIOL
     Dosage: UNK
     Dates: start: 20110802, end: 20120110
  3. YAZ [Suspect]
     Active Substance: DROSPIRENONE\ETHINYL ESTRADIOL
     Dosage: UNK
     Dates: start: 20110802, end: 20120110

REACTIONS (12)
  - Emotional distress [None]
  - Pain [None]
  - Embolic stroke [None]
  - Paradoxical embolism [None]
  - Cerebral ischaemia [None]
  - Deep vein thrombosis [None]
  - Injury [None]
  - Anhedonia [None]
  - Atrial septal defect [None]
  - Cerebrovascular accident [None]
  - General physical health deterioration [None]
  - Anxiety [None]

NARRATIVE: CASE EVENT DATE: 20120110
